FAERS Safety Report 17562180 (Version 2)
Quarter: 2020Q2

REPORT INFORMATION
  Report Type: Report from Study
  Country: US (occurrence: US)
  Receive Date: 20200319
  Receipt Date: 20200624
  Transmission Date: 20200713
  Serious: Yes (Hospitalization, Other)
  Sender: FDA-Public Use
  Company Number: US-MYLANLABS-2020M1029217

PATIENT
  Age: 58 Year
  Sex: Female
  Weight: 91 kg

DRUGS (2)
  1. GLATIRAMER ACETATE INJECTION [Suspect]
     Active Substance: GLATIRAMER ACETATE
     Dosage: 40 MILLIGRAM, 3XW
     Route: 058
  2. GLATIRAMER ACETATE INJECTION [Suspect]
     Active Substance: GLATIRAMER ACETATE
     Indication: RELAPSING-REMITTING MULTIPLE SCLEROSIS
     Dosage: 40 MILLIGRAM, 3XW

REACTIONS (8)
  - Seroma [Unknown]
  - Injection site irritation [Unknown]
  - Condition aggravated [Unknown]
  - Intestinal obstruction [Unknown]
  - Injection site swelling [Unknown]
  - Injection site pain [Recovering/Resolving]
  - Product dose omission [Unknown]
  - Injection site indentation [Unknown]

NARRATIVE: CASE EVENT DATE: 20200610
